FAERS Safety Report 21950213 (Version 1)
Quarter: 2023Q1

REPORT INFORMATION
  Report Type: Spontaneous
  Country: US (occurrence: None)
  Receive Date: 20230202
  Receipt Date: 20230202
  Transmission Date: 20230417
  Serious: No
  Sender: FDA-Public Use
  Company Number: None

PATIENT
  Sex: 0

DRUGS (1)
  1. QULIPTA [Suspect]
     Active Substance: ATOGEPANT
     Indication: Migraine prophylaxis
     Dosage: OTHER QUANTITY : 1 TABLET(S);?FREQUENCY : DAILY;?
     Route: 048
     Dates: start: 20230119

REACTIONS (6)
  - Erythema [None]
  - Feeling hot [None]
  - Erythema [None]
  - Hot flush [None]
  - Dry skin [None]
  - Hypersensitivity [None]

NARRATIVE: CASE EVENT DATE: 20230120
